FAERS Safety Report 12939693 (Version 2)
Quarter: 2016Q4

REPORT INFORMATION
  Report Type: Spontaneous
  Country: US (occurrence: US)
  Receive Date: 20161114
  Receipt Date: 20161116
  Transmission Date: 20170207
  Serious: Yes (Hospitalization, Other)
  Sender: FDA-Public Use
  Company Number: US-BIOGEN-2016BI00316797

PATIENT
  Sex: Female

DRUGS (5)
  1. TYSABRI [Suspect]
     Active Substance: NATALIZUMAB
     Indication: MULTIPLE SCLEROSIS
     Route: 065
     Dates: start: 20080710, end: 20080807
  2. TECFIDERA [Suspect]
     Active Substance: DIMETHYL FUMARATE
     Route: 065
     Dates: start: 20130423, end: 20130423
  3. TYSABRI [Suspect]
     Active Substance: NATALIZUMAB
     Route: 065
     Dates: start: 20080710, end: 20130412
  4. TECFIDERA [Suspect]
     Active Substance: DIMETHYL FUMARATE
     Indication: MULTIPLE SCLEROSIS
     Route: 065
     Dates: start: 20100511
  5. TECFIDERA [Suspect]
     Active Substance: DIMETHYL FUMARATE
     Route: 065
     Dates: start: 20130423

REACTIONS (8)
  - Therapeutic procedure [Unknown]
  - Device failure [Recovered/Resolved]
  - Atrial fibrillation [Recovered/Resolved]
  - Surgery [Unknown]
  - Urinary control neurostimulator implantation [Recovered/Resolved]
  - Neurostimulator removal [Recovered/Resolved]
  - Neurostimulator implantation [Recovered/Resolved]
  - Cholecystectomy [Recovered/Resolved]
